FAERS Safety Report 5247981-4 (Version None)
Quarter: 2007Q1

REPORT INFORMATION
  Report Type: 
  Country: None (occurrence: None)
  Receive Date: 20070227
  Receipt Date: 20070220
  Transmission Date: 20070707
  Serious: Yes (Hospitalization, Other)
  Sender: FDA-Public Use
  Company Number: 2003UW06276

PATIENT
  Age: 754 Month
  Sex: Female
  Weight: 73.5 kg

DRUGS (3)
  1. ARIMIDEX [Suspect]
     Indication: BREAST CANCER FEMALE
     Route: 048
     Dates: start: 20011101
  2. LIPITOR [Concomitant]
  3. ACTONEL [Concomitant]
     Dates: end: 20061201

REACTIONS (11)
  - ALOPECIA [None]
  - ARTHRALGIA [None]
  - BACK PAIN [None]
  - BLOOD CHOLESTEROL INCREASED [None]
  - BREAST PAIN [None]
  - CHOLECYSTECTOMY [None]
  - CHOLELITHIASIS [None]
  - HYPOTRICHOSIS [None]
  - LYMPHOEDEMA [None]
  - VOMITING [None]
  - WEIGHT INCREASED [None]
